FAERS Safety Report 9272798 (Version 4)
Quarter: 2013Q4

REPORT INFORMATION
  Report Type: Report from Study
  Country: IL (occurrence: IL)
  Receive Date: 20130506
  Receipt Date: 20131121
  Transmission Date: 20140711
  Serious: Yes (Death, Hospitalization, Other)
  Sender: FDA-Public Use
  Company Number: IL-BAYER-2013-041876

PATIENT
  Age: 68 Year
  Sex: Female
  Weight: 40 kg

DRUGS (4)
  1. REGORAFENIB [Suspect]
     Indication: GASTROINTESTINAL STROMAL TUMOUR
     Dosage: 80 MG, QD (2 TABLETS/DAY)
     Dates: start: 20130305, end: 20130711
  2. REGORAFENIB [Suspect]
     Indication: GASTROINTESTINAL STROMAL TUMOUR
     Dosage: 120 MG, QD (3 TABLETS/DAY)
     Dates: start: 2013
  3. REGORAFENIB [Suspect]
     Indication: GASTROINTESTINAL STROMAL TUMOUR
     Dosage: UNK
  4. ASPIRIN [Suspect]
     Dosage: UNK
     Dates: start: 201302

REACTIONS (6)
  - Gastrointestinal stromal tumour [Fatal]
  - Syncope [None]
  - Gastrointestinal haemorrhage [None]
  - Fatigue [None]
  - Asthenia [None]
  - Jaundice [None]
